FAERS Safety Report 10460531 (Version 58)
Quarter: 2020Q1

REPORT INFORMATION
  Report Type: Report from Study
  Country: CA (occurrence: CA)
  Receive Date: 20140918
  Receipt Date: 20200305
  Transmission Date: 20200409
  Serious: Yes (Hospitalization, Other)
  Sender: FDA-Public Use
  Company Number: CA-ROCHE-1409583

PATIENT
  Age: 68 Year
  Sex: Female
  Weight: 88 kg

DRUGS (16)
  1. ACTEMRA [Suspect]
     Active Substance: TOCILIZUMAB
     Route: 042
     Dates: start: 20160113, end: 20190107
  2. ACTEMRA [Suspect]
     Active Substance: TOCILIZUMAB
     Route: 042
     Dates: start: 20190207, end: 20200217
  3. ESOMEPRAZOLE. [Concomitant]
     Active Substance: ESOMEPRAZOLE MAGNESIUM
     Route: 065
  4. ACTEMRA [Suspect]
     Active Substance: TOCILIZUMAB
     Dosage: 37 INFUSION
     Route: 042
     Dates: start: 20171109
  5. METHOTREXATE. [Concomitant]
     Active Substance: METHOTREXATE
     Route: 065
  6. FOLIC ACID. [Concomitant]
     Active Substance: FOLIC ACID
     Route: 065
  7. ASA [Concomitant]
     Active Substance: ASPIRIN
     Route: 065
  8. TRAZAMINE [Concomitant]
     Active Substance: CHOLINE\TRAZODONE HYDROCHLORIDE
     Route: 065
  9. ACTEMRA [Suspect]
     Active Substance: TOCILIZUMAB
     Dosage: 37 INFUSION
     Route: 042
     Dates: start: 20171205
  10. ACTEMRA [Suspect]
     Active Substance: TOCILIZUMAB
     Dosage: 33 INFUSION
     Route: 042
     Dates: start: 20170619
  11. OLMETEC [Suspect]
     Active Substance: OLMESARTAN MEDOXOMIL
     Indication: PRODUCT USED FOR UNKNOWN INDICATION
     Route: 065
     Dates: end: 202002
  12. ACTEMRA [Suspect]
     Active Substance: TOCILIZUMAB
     Route: 042
     Dates: start: 20180102
  13. SYNTHROID [Concomitant]
     Active Substance: LEVOTHYROXINE SODIUM
     Route: 065
  14. VERAPAMIL [Concomitant]
     Active Substance: VERAPAMIL HYDROCHLORIDE
     Route: 065
  15. ACTEMRA [Suspect]
     Active Substance: TOCILIZUMAB
     Indication: RHEUMATOID ARTHRITIS
     Route: 042
     Dates: start: 20140430, end: 20150601
  16. PLAQUENIL [Concomitant]
     Active Substance: HYDROXYCHLOROQUINE SULFATE
     Route: 065

REACTIONS (51)
  - Tuberculosis [Unknown]
  - Heart rate decreased [Unknown]
  - Body temperature decreased [Unknown]
  - Pain in extremity [Not Recovered/Not Resolved]
  - Cough [Unknown]
  - Heart rate decreased [Unknown]
  - Back pain [Unknown]
  - Fatigue [Unknown]
  - Aortic valve disease [Unknown]
  - Hypertension [Unknown]
  - Tongue ulceration [Recovered/Resolved]
  - Oxygen saturation decreased [Unknown]
  - Eye infection [Not Recovered/Not Resolved]
  - Headache [Unknown]
  - Headache [Recovered/Resolved]
  - Blood pressure diastolic decreased [Unknown]
  - Pain [Not Recovered/Not Resolved]
  - Paranasal sinus hypersecretion [Unknown]
  - Infusion related reaction [Unknown]
  - Off label use [Unknown]
  - Weight decreased [Unknown]
  - Amnesia [Recovered/Resolved]
  - Chest discomfort [Recovered/Resolved]
  - Pyelonephritis [Recovered/Resolved]
  - Mouth ulceration [Unknown]
  - Anxiety [Unknown]
  - Pain in extremity [Recovered/Resolved]
  - Urinary tract infection [Recovered/Resolved]
  - Influenza [Not Recovered/Not Resolved]
  - Gastrooesophageal reflux disease [Not Recovered/Not Resolved]
  - Dizziness [Recovered/Resolved]
  - Blood pressure diastolic decreased [Unknown]
  - Stress [Unknown]
  - General physical health deterioration [Recovering/Resolving]
  - Hiatus hernia [Unknown]
  - Renal cyst [Not Recovered/Not Resolved]
  - Blood pressure systolic abnormal [Unknown]
  - Blood pressure systolic increased [Unknown]
  - Nausea [Unknown]
  - Dry throat [Recovered/Resolved]
  - Intentional product use issue [Unknown]
  - Blood pressure inadequately controlled [Not Recovered/Not Resolved]
  - Rash erythematous [Recovering/Resolving]
  - Infusion related reaction [Unknown]
  - Oedema [Unknown]
  - Blood pressure decreased [Unknown]
  - Sinusitis [Recovered/Resolved]
  - Arthralgia [Recovering/Resolving]
  - Drug ineffective [Unknown]
  - Blood pressure diastolic abnormal [Unknown]
  - Nasopharyngitis [Not Recovered/Not Resolved]

NARRATIVE: CASE EVENT DATE: 20140531
